FAERS Safety Report 18300701 (Version 1)
Quarter: 2020Q3

REPORT INFORMATION
  Report Type: Spontaneous
  Country: US (occurrence: US)
  Receive Date: 20200923
  Receipt Date: 20200923
  Transmission Date: 20201103
  Serious: Yes (Hospitalization)
  Sender: FDA-Public Use
  Company Number: None

PATIENT
  Age: 58 Year
  Sex: Male
  Weight: 95 kg

DRUGS (1)
  1. LISINOPRIL (LISINOPRIL 20MG TAB) [Suspect]
     Active Substance: LISINOPRIL
     Indication: HYPERTENSION
     Route: 048
     Dates: start: 20001030, end: 20140611

REACTIONS (3)
  - Urticaria [None]
  - Angioedema [None]
  - Pruritus [None]

NARRATIVE: CASE EVENT DATE: 20140611
